FAERS Safety Report 25766912 (Version 1)
Quarter: 2025Q3

REPORT INFORMATION
  Report Type: Spontaneous
  Country: US (occurrence: None)
  Receive Date: 20250904
  Receipt Date: 20250904
  Transmission Date: 20251021
  Serious: Yes (Other)
  Sender: FDA-CTU
  Company Number: None

PATIENT
  Age: 37 Year
  Sex: Male
  Weight: 74.1 kg

DRUGS (6)
  1. HALOPERIDOL [Suspect]
     Active Substance: HALOPERIDOL
     Indication: Schizophrenia
     Dosage: FREQUENCY : DAILY;?
     Route: 048
     Dates: start: 20250618
  2. haloperidol 10 mg QHS [Concomitant]
     Dates: start: 20250701
  3. olanzapine 5 mg QHS [Concomitant]
     Dates: end: 20250618
  4. propranolol 20 mg BID [Concomitant]
     Dates: start: 20250701
  5. propranolol 10 mg q8hr PRN [Concomitant]
     Dates: start: 20250701
  6. quetiapine 200 mg QHS [Concomitant]
     Dates: start: 202507

REACTIONS (7)
  - Akathisia [None]
  - Hallucination, auditory [None]
  - Aggression [None]
  - Feeling jittery [None]
  - Anxiety [None]
  - Refusal of treatment by patient [None]
  - Poor quality sleep [None]

NARRATIVE: CASE EVENT DATE: 20250701
